FAERS Safety Report 10003348 (Version 3)
Quarter: 2015Q3

REPORT INFORMATION
  Report Type: Spontaneous
  Country: US (occurrence: US)
  Receive Date: 20140312
  Receipt Date: 20150812
  Transmission Date: 20151125
  Serious: No
  Sender: FDA-Public Use
  Company Number: US-GILEAD-2012-0059232

PATIENT
  Age: 93 Year
  Sex: Male

DRUGS (2)
  1. OXYGEN. [Suspect]
     Active Substance: OXYGEN
  2. LETAIRIS [Suspect]
     Active Substance: AMBRISENTAN
     Indication: PRODUCT USED FOR UNKNOWN INDICATION
     Dosage: 5 MG, UNK
     Route: 048
     Dates: start: 2012

REACTIONS (6)
  - Epistaxis [Unknown]
  - Cough [Unknown]
  - Nasal dryness [Unknown]
  - Nasal congestion [Unknown]
  - Haemoptysis [Unknown]
  - Asthenia [Unknown]
